FAERS Safety Report 5307317-7 (Version None)
Quarter: 2007Q2

REPORT INFORMATION
  Report Type: 
  Country: None (occurrence: None)
  Receive Date: 20070425
  Receipt Date: 20070420
  Transmission Date: 20071010
  Serious: Yes (Hospitalization)
  Sender: FDA-Public Use
  Company Number: HQWYE731720APR07

PATIENT
  Age: 83 Year
  Sex: Male

DRUGS (7)
  1. CORDARONE [Suspect]
     Indication: ATRIAL FIBRILLATION
     Dosage: DOSE UNKNOWN
     Route: 048
     Dates: end: 20060414
  2. CORDARONE [Interacting]
     Indication: ATRIAL FLUTTER
     Route: 048
     Dates: end: 20070210
  3. BETASERC [Concomitant]
     Route: 048
     Dates: end: 20070210
  4. VASTAREL [Concomitant]
     Dosage: 1 TABLET DAILY
     Route: 048
     Dates: end: 20070210
  5. TAVANIC [Interacting]
     Dosage: 500 MG, FREQUENCY UNSPECIFIED
     Route: 048
     Dates: start: 20070208, end: 20070209
  6. HEMIGOXINE NATIVELLE [Interacting]
     Indication: ATRIAL FIBRILLATION
     Route: 048
     Dates: end: 20070210
  7. HEMIGOXINE NATIVELLE [Interacting]
     Indication: ATRIAL FLUTTER

REACTIONS (5)
  - BRADYCARDIA [None]
  - DRUG INEFFECTIVE [None]
  - ELECTROCARDIOGRAM QT PROLONGED [None]
  - TRANSIENT ISCHAEMIC ATTACK [None]
  - VENTRICULAR EXTRASYSTOLES [None]
